FAERS Safety Report 17830351 (Version 2)
Quarter: 2023Q1

REPORT INFORMATION
  Report Type: Spontaneous
  Country: US (occurrence: US)
  Receive Date: 20200527
  Receipt Date: 20230308
  Transmission Date: 20230418
  Serious: Yes (Hospitalization, Other)
  Sender: FDA-Public Use
  Company Number: US-INDIVIOR US-INDV-124996-2020

PATIENT
  Age: 50 Year
  Sex: Female

DRUGS (2)
  1. BUPRENORPHINE\NALOXONE [Suspect]
     Active Substance: BUPRENORPHINE\NALOXONE
     Indication: Drug dependence
     Dosage: UNK
     Route: 065
  2. BUPRENORPHINE\NALOXONE [Suspect]
     Active Substance: BUPRENORPHINE\NALOXONE
     Indication: Pain
     Dosage: UNK (RE INTRODUCED)
     Route: 065

REACTIONS (3)
  - Meningitis bacterial [Unknown]
  - Extradural abscess [Unknown]
  - Drug abuse [Unknown]
